FAERS Safety Report 11383036 (Version 1)
Quarter: 2015Q3

REPORT INFORMATION
  Report Type: Spontaneous
  Country: GB (occurrence: GB)
  Receive Date: 20150814
  Receipt Date: 20150814
  Transmission Date: 20151125
  Serious: Yes (Hospitalization)
  Sender: FDA-Public Use
  Company Number: GB-ASTRAZENECA-2015SE77627

PATIENT
  Age: 25263 Day
  Sex: Male

DRUGS (2)
  1. SYMBICORT [Suspect]
     Active Substance: BUDESONIDE\FORMOTEROL FUMARATE DIHYDRATE
     Indication: ASTHMA
     Dosage: 200/6 MCG, 2 PUFFS FOUR TIMES A DAY
     Route: 055
  2. SYMBICORT [Suspect]
     Active Substance: BUDESONIDE\FORMOTEROL FUMARATE DIHYDRATE
     Indication: ASTHMA
     Dosage: 200/6 MCG, 2 PUFFS TWO TIMES A DAY
     Route: 055

REACTIONS (4)
  - Dyspnoea [Unknown]
  - Loss of consciousness [Unknown]
  - Peak expiratory flow rate decreased [Unknown]
  - Cyanosis [Unknown]

NARRATIVE: CASE EVENT DATE: 20150806
